FAERS Safety Report 7394460-4 (Version None)
Quarter: 2011Q2

REPORT INFORMATION
  Report Type: 
  Country: None (occurrence: None)
  Receive Date: 20110405
  Receipt Date: 20110322
  Transmission Date: 20111010
  Serious: No
  Sender: FDA-Public Use
  Company Number: PHHY2011US23425

PATIENT
  Sex: Female
  Weight: 68.027 kg

DRUGS (6)
  1. TOPROL-XL [Concomitant]
     Indication: HYPERTENSION
     Dosage: 50 MG, QD
     Route: 048
  2. NECON [Concomitant]
     Indication: MENOPAUSE
     Dosage: 135 UG, QD
     Route: 048
  3. ZYRTEC [Concomitant]
     Indication: HYPERSENSITIVITY
     Dosage: 10 MG, QD
     Route: 048
  4. GILENYA [Suspect]
     Indication: MULTIPLE SCLEROSIS
     Dosage: 0.5 MG, QD
     Route: 048
     Dates: start: 20110113
  5. ASPIRIN [Concomitant]
     Indication: CARDIAC DISORDER
     Dosage: 81 MG, QD
     Route: 048
  6. UNIVASC [Concomitant]
     Indication: HYPERTENSION
     Dosage: UNK
     Route: 048

REACTIONS (9)
  - FATIGUE [None]
  - NASOPHARYNGITIS [None]
  - LYMPHOCYTE COUNT DECREASED [None]
  - COUGH [None]
  - OROPHARYNGEAL PAIN [None]
  - LARYNGITIS [None]
  - VIRAL INFECTION [None]
  - MALAISE [None]
  - PYREXIA [None]
